FAERS Safety Report 20321263 (Version 3)
Quarter: 2023Q2

REPORT INFORMATION
  Report Type: Spontaneous
  Country: PT (occurrence: PT)
  Receive Date: 20220111
  Receipt Date: 20230510
  Transmission Date: 20230721
  Serious: Yes (Disabling, Other)
  Sender: FDA-Public Use
  Company Number: PT-MYLANLABS-2021M1089845

PATIENT
  Age: 33 Year
  Sex: Female

DRUGS (8)
  1. RISPERIDONE [Interacting]
     Active Substance: RISPERIDONE
     Indication: Obsessive-compulsive disorder
     Dosage: 1 MILLIGRAM, QD
     Route: 065
  2. RISPERIDONE [Interacting]
     Active Substance: RISPERIDONE
     Indication: Depression
  3. FLUVOXAMINE [Suspect]
     Active Substance: FLUVOXAMINE
     Indication: Obsessive-compulsive disorder
     Dosage: UNK
     Route: 065
     Dates: start: 2019
  4. SERTRALINE [Interacting]
     Active Substance: SERTRALINE HYDROCHLORIDE
     Indication: Obsessive-compulsive disorder
     Dosage: UNK, STARTED AND TITRATED UP TO 200 MG
     Route: 065
  5. SERTRALINE [Interacting]
     Active Substance: SERTRALINE HYDROCHLORIDE
     Indication: Depression
     Dosage: 200 MILLIGRAM, QD
     Route: 065
  6. ARIPIPRAZOLE [Suspect]
     Active Substance: ARIPIPRAZOLE
     Indication: Obsessive-compulsive disorder
     Dosage: UNK
     Route: 065
  7. CLOMIPRAMINE [Concomitant]
     Active Substance: CLOMIPRAMINE
     Indication: Obsessive-compulsive disorder
     Dosage: UNK
     Route: 065
  8. CLOMIPRAMINE [Concomitant]
     Active Substance: CLOMIPRAMINE
     Indication: Depression

REACTIONS (8)
  - Antipsychotic drug level increased [Unknown]
  - Oedema peripheral [Recovered/Resolved]
  - Drug interaction [Recovered/Resolved]
  - Weight increased [Recovered/Resolved]
  - Fatigue [Recovered/Resolved]
  - Therapeutic product effect incomplete [Unknown]
  - Somnolence [Unknown]
  - Drug interaction [Unknown]
